FAERS Safety Report 6718708-1 (Version None)
Quarter: 2010Q2

REPORT INFORMATION
  Report Type: 
  Country: None (occurrence: None)
  Receive Date: 20100507
  Receipt Date: 20100503
  Transmission Date: 20101027
  Serious: Yes (Other)
  Sender: FDA-Public Use
  Company Number: 011210

PATIENT
  Sex: Female
  Weight: 111.1313 kg

DRUGS (4)
  1. CIMZIA [Suspect]
     Indication: CROHN'S DISEASE
     Dosage: SUBCUTANEOUS
     Route: 058
     Dates: start: 20091001
  2. LISINOPRIL [Concomitant]
  3. FLAGYL [Concomitant]
  4. INSULIN [Concomitant]

REACTIONS (2)
  - RENAL FAILURE CHRONIC [None]
  - SYSTEMIC LUPUS ERYTHEMATOSUS [None]
